FAERS Safety Report 14721236 (Version 1)
Quarter: 2018Q2

REPORT INFORMATION
  Report Type: Spontaneous
  Country: ES (occurrence: ES)
  Receive Date: 20180405
  Receipt Date: 20180405
  Transmission Date: 20180711
  Serious: Yes (Other)
  Sender: FDA-Public Use
  Company Number: ES-JNJFOC-20180404908

PATIENT
  Age: 61 Year
  Sex: Male
  Weight: 73 kg

DRUGS (5)
  1. ZALDIAR [Suspect]
     Active Substance: ACETAMINOPHEN\TRAMADOL HYDROCHLORIDE
     Indication: SCIATICA
     Route: 048
     Dates: start: 20180208, end: 20180210
  2. ARCOXIA [Concomitant]
     Active Substance: ETORICOXIB
     Indication: BACK PAIN
     Route: 065
     Dates: start: 20180124, end: 20180131
  3. TRAMADOL STADA [Concomitant]
     Indication: BACK PAIN
     Route: 065
     Dates: start: 20180201, end: 20180211
  4. ZALDIAR [Suspect]
     Active Substance: ACETAMINOPHEN\TRAMADOL HYDROCHLORIDE
     Indication: BACK PAIN
     Route: 048
     Dates: start: 20180208, end: 20180210
  5. YURELAX [Concomitant]
     Active Substance: CYCLOBENZAPRINE HYDROCHLORIDE
     Indication: BACK PAIN
     Route: 065
     Dates: start: 20180201, end: 20180206

REACTIONS (4)
  - Headache [Recovering/Resolving]
  - Parosmia [Recovering/Resolving]
  - Somnolence [Recovering/Resolving]
  - Dizziness [Recovering/Resolving]

NARRATIVE: CASE EVENT DATE: 20180209
